FAERS Safety Report 6401255-4 (Version None)
Quarter: 2009Q4

REPORT INFORMATION
  Report Type: 
  Country: None (occurrence: None)
  Receive Date: 20091015
  Receipt Date: 20071008
  Transmission Date: 20100525
  Serious: Yes (Disabling)
  Sender: FDA-Public Use
  Company Number: US-ASTRAZENECA-2006UW08026

PATIENT
  Sex: Male

DRUGS (12)
  1. SEROQUEL [Suspect]
     Route: 048
     Dates: start: 20000821
  2. VIOXX [Concomitant]
     Dates: start: 20010119
  3. PAXIL [Concomitant]
     Dates: start: 20000821
  4. NEURONTIN [Concomitant]
     Dates: start: 20030703
  5. TYLENOL (CAPLET) [Concomitant]
     Dosage: 3 PRN
     Dates: start: 20020925
  6. ASPIRIN [Concomitant]
     Dates: start: 20020925
  7. CODEINE [Concomitant]
     Dates: start: 20020925
  8. AMITRIPTYLINE [Concomitant]
     Route: 048
     Dates: start: 20020925
  9. GLYBURIDE [Concomitant]
     Dates: start: 20020925
  10. METFORMIN HYDROCHLORIDE [Concomitant]
     Dates: start: 20020925
  11. NAPROSYN [Concomitant]
     Dates: start: 20021118
  12. TOPROL-XL [Concomitant]
     Dates: start: 20040830

REACTIONS (1)
  - ILL-DEFINED DISORDER [None]
